FAERS Safety Report 8133608-0 (Version None)
Quarter: 2012Q1

REPORT INFORMATION
  Report Type: 
  Country: None (occurrence: None)
  Receive Date: 20120213
  Receipt Date: 20120206
  Transmission Date: 20120608
  Serious: Yes (Hospitalization)
  Sender: FDA-Public Use
  Company Number: BE-TEVA-321430ISR

PATIENT
  Age: 34 Year
  Sex: Female
  Weight: 65 kg

DRUGS (2)
  1. ACETAMINOPHEN [Suspect]
     Indication: OVERDOSE
     Dosage: MAXIMAL OVERDOSE OF 20G PARACETAMOL
     Route: 048
  2. VENLAFAXINE [Suspect]
     Indication: OVERDOSE
     Dosage: MAXIMAL OVERDOSE OF 7.5G EXTENDED-RELEASE AND 3.75G IMMEDIATE-RELEASE VENLAFAXINE
     Route: 048

REACTIONS (8)
  - CARDIOMYOPATHY [None]
  - RENAL FAILURE [None]
  - COMA [None]
  - CARDIAC FAILURE [None]
  - SEROTONIN SYNDROME [None]
  - RESPIRATORY FAILURE [None]
  - RHABDOMYOLYSIS [None]
  - OVERDOSE [None]
